FAERS Safety Report 8512196 (Version 4)
Quarter: 2015Q1

REPORT INFORMATION
  Report Type: Spontaneous
  Country: US (occurrence: US)
  Receive Date: 20120413
  Receipt Date: 20150116
  Transmission Date: 20150721
  Serious: Yes (Hospitalization, Other)
  Sender: FDA-Public Use
  Company Number: US-ASTRAZENECA-2011SE17672

PATIENT
  Age: 61 Year
  Sex: Female
  Weight: 60.3 kg

DRUGS (22)
  1. CRESTOR [Suspect]
     Active Substance: ROSUVASTATIN CALCIUM
     Indication: BLOOD CHOLESTEROL INCREASED
     Route: 048
     Dates: start: 2006
  2. ALPRAZOLAM. [Concomitant]
     Active Substance: ALPRAZOLAM
     Indication: ANXIETY
     Route: 048
     Dates: start: 2013
  3. VAGIGEL [Concomitant]
     Indication: HORMONE THERAPY
     Route: 061
  4. TESTOSTERONE. [Concomitant]
     Active Substance: TESTOSTERONE
     Indication: HORMONE REPLACEMENT THERAPY
     Route: 061
  5. FLEXERIL [Concomitant]
     Active Substance: CYCLOBENZAPRINE HYDROCHLORIDE
     Indication: MUSCLE TIGHTNESS
     Dosage: GENERIC, 10 MG THREE TIMES A DAY AS REQUIRED.
     Route: 048
     Dates: start: 201308
  6. AMITIZA [Concomitant]
     Active Substance: LUBIPROSTONE
     Indication: CONSTIPATION
     Route: 048
     Dates: start: 20141211
  7. DONNETAL [Concomitant]
     Indication: ABDOMINAL PAIN UPPER
  8. CRESTOR [Suspect]
     Active Substance: ROSUVASTATIN CALCIUM
     Indication: BLOOD CHOLESTEROL INCREASED
     Route: 048
     Dates: start: 2010
  9. DIVIGEL [Concomitant]
     Active Substance: ESTRADIOL
     Indication: LIBIDO DISORDER
     Route: 061
     Dates: start: 20141111
  10. AMITIZA [Concomitant]
     Active Substance: LUBIPROSTONE
     Indication: IRRITABLE BOWEL SYNDROME
     Route: 048
     Dates: start: 20141211
  11. NEXIUM [Suspect]
     Active Substance: ESOMEPRAZOLE MAGNESIUM
     Indication: GASTROOESOPHAGEAL REFLUX DISEASE
     Route: 048
     Dates: start: 2001, end: 2011
  12. ALPRAZOLAM. [Concomitant]
     Active Substance: ALPRAZOLAM
     Indication: PANIC ATTACK
     Dates: start: 1994
  13. FLEXERIL [Concomitant]
     Active Substance: CYCLOBENZAPRINE HYDROCHLORIDE
     Indication: MUSCLE RELAXANT THERAPY
     Dosage: GENERIC, 10 MG THREE TIMES A DAY AS REQUIRED.
     Route: 048
     Dates: start: 201308
  14. ALPRAZOLAM. [Concomitant]
     Active Substance: ALPRAZOLAM
     Indication: ANXIETY
     Dates: start: 1994
  15. KLONOPIN [Concomitant]
     Active Substance: CLONAZEPAM
     Indication: ANXIETY
     Route: 048
     Dates: start: 2013
  16. NEXIUM [Suspect]
     Active Substance: ESOMEPRAZOLE MAGNESIUM
     Indication: GASTROOESOPHAGEAL REFLUX DISEASE
     Route: 048
     Dates: start: 2011
  17. ALPRAZOLAM. [Concomitant]
     Active Substance: ALPRAZOLAM
     Indication: MUSCLE RELAXANT THERAPY
     Dates: start: 1994
  18. ALPRAZOLAM. [Concomitant]
     Active Substance: ALPRAZOLAM
     Indication: MUSCLE RELAXANT THERAPY
     Route: 048
     Dates: start: 2013
  19. ALPRAZOLAM. [Concomitant]
     Active Substance: ALPRAZOLAM
     Indication: PANIC ATTACK
     Route: 048
     Dates: start: 2013
  20. TESTOSTERONE. [Concomitant]
     Active Substance: TESTOSTERONE
     Indication: LIBIDO DISORDER
     Route: 061
  21. MIRALAX OTC [Concomitant]
     Indication: IRRITABLE BOWEL SYNDROME
  22. MIRALAX OTC [Concomitant]
     Indication: CONSTIPATION

REACTIONS (17)
  - Oesophageal pain [Unknown]
  - Mental impairment [Unknown]
  - Off label use [Unknown]
  - Drug dose omission [Unknown]
  - Exostosis [Unknown]
  - Memory impairment [Not Recovered/Not Resolved]
  - Dry mouth [Unknown]
  - Intentional product misuse [Unknown]
  - Gastrooesophageal reflux disease [Not Recovered/Not Resolved]
  - Diverticulum [Unknown]
  - Spinal osteoarthritis [Unknown]
  - Musculoskeletal discomfort [Not Recovered/Not Resolved]
  - Regurgitation [Unknown]
  - Osteopenia [Unknown]
  - Discomfort [Unknown]
  - Blood cholesterol increased [Unknown]
  - Diabetes mellitus [Unknown]

NARRATIVE: CASE EVENT DATE: 2001
